FAERS Safety Report 14521974 (Version 1)
Quarter: 2018Q1

REPORT INFORMATION
  Report Type: Spontaneous
  Country: DE (occurrence: DE)
  Receive Date: 20180212
  Receipt Date: 20180212
  Transmission Date: 20180509
  Serious: Yes (Death)
  Sender: FDA-Public Use
  Company Number: DE-MYLANLABS-2018M1009571

PATIENT
  Age: 52 Year
  Sex: Male

DRUGS (4)
  1. PACLITAXEL. [Suspect]
     Active Substance: PACLITAXEL
     Indication: NEOPLASM PROGRESSION
     Dosage: UNK
  2. 5-FLUOROURACIL                     /00098801/ [Concomitant]
     Active Substance: FLUOROURACIL
     Indication: NEOPLASM PROGRESSION
     Dosage: UNK
  3. TEMSIROLIMUS [Concomitant]
     Active Substance: TEMSIROLIMUS
     Indication: NEOPLASM PROGRESSION
     Dosage: UNK
  4. CISPLATIN. [Concomitant]
     Active Substance: CISPLATIN
     Indication: LARYNGEAL SQUAMOUS CELL CARCINOMA
     Dosage: 160 MG, UNK

REACTIONS (2)
  - Septic shock [Fatal]
  - Pancytopenia [Fatal]
